FAERS Safety Report 15300506 (Version 1)
Quarter: 2018Q3

REPORT INFORMATION
  Report Type: Spontaneous
  Country: US (occurrence: US)
  Receive Date: 20180808
  Receipt Date: 20180808
  Transmission Date: 20181010
  Serious: Yes (Disabling)
  Sender: FDA-Public Use
  Company Number: None

PATIENT
  Age: 33 Year
  Sex: Female
  Weight: 58.5 kg

DRUGS (6)
  1. FLAGYL [Concomitant]
     Active Substance: METRONIDAZOLE\METRONIDAZOLE HYDROCHLORIDE
  2. CIPRO [Suspect]
     Active Substance: CIPROFLOXACIN HYDROCHLORIDE
     Indication: DIVERTICULITIS
     Dosage: ?          QUANTITY:1 TABLET(S);?
     Route: 048
     Dates: start: 20180629, end: 20180701
  3. FLORAJEN3 [Concomitant]
  4. AMBIEN [Concomitant]
     Active Substance: ZOLPIDEM TARTRATE
  5. XANAX [Concomitant]
     Active Substance: ALPRAZOLAM
  6. PROBIOTICS [Concomitant]
     Active Substance: PROBIOTICS NOS

REACTIONS (13)
  - Self-injurious ideation [None]
  - Depersonalisation/derealisation disorder [None]
  - Tendon pain [None]
  - Suicidal ideation [None]
  - Insomnia [None]
  - Pain [None]
  - Contusion [None]
  - Disorientation [None]
  - Memory impairment [None]
  - Aphasia [None]
  - Confusional state [None]
  - Dysphemia [None]
  - Arthralgia [None]

NARRATIVE: CASE EVENT DATE: 20180701
